FAERS Safety Report 18121339 (Version 4)
Quarter: 2020Q4

REPORT INFORMATION
  Report Type: Spontaneous
  Country: JP (occurrence: JP)
  Receive Date: 20200806
  Receipt Date: 20201203
  Transmission Date: 20210113
  Serious: Yes (Hospitalization, Other)
  Sender: FDA-Public Use
  Company Number: JP-009507513-2008JPN001663

PATIENT
  Age: 79 Year
  Sex: Male
  Weight: 53 kg

DRUGS (14)
  1. BAKTAR [Suspect]
     Active Substance: SULFAMETHOXAZOLE\TRIMETHOPRIM
     Dosage: UNK
     Route: 065
     Dates: start: 20191227, end: 20200110
  2. MAGNESIUM OXIDE. [Concomitant]
     Active Substance: MAGNESIUM OXIDE
     Dosage: 330 MG, Q8H (CONFLICTING INFORMATION: ALSO REPORTED AS TID)
     Route: 048
  3. GLACTIV [Suspect]
     Active Substance: SITAGLIPTIN
     Indication: DIABETES MELLITUS
     Dosage: 50 MG, EVERYDAY
     Route: 048
  4. METGLUCO [Concomitant]
     Active Substance: METFORMIN HYDROCHLORIDE
     Indication: DIABETES MELLITUS
     Dosage: 250 MG, EVERYDAY
     Route: 048
  5. MECOBALAMIN [Concomitant]
     Active Substance: METHYLCOBALAMIN
     Dosage: 500 UG, Q8H (CONFLICTING INFORMATION: ALSO REPORTED AS TID)
     Route: 048
  6. LIMAPROST ALFADEX [Concomitant]
     Active Substance: LIMAPROST
     Dosage: 5 UG, Q8H (CONFLICTING INFORMATION: ALSO REPORTED AS TID)
     Route: 048
  7. RINDERON (BETAMETHASONE ACETATE (+) BETAMETHASONE SODIUM PHOSPHATE) [Concomitant]
     Dosage: UNK, Q4H
     Route: 031
  8. PRORANON [Concomitant]
     Dosage: UNK UNK, Q6H
     Route: 031
  9. RABEPRAZOLE SODIUM. [Concomitant]
     Active Substance: RABEPRAZOLE SODIUM
     Dosage: 10 MG, EVERYDAY
     Route: 048
  10. PREDONINE [Concomitant]
     Active Substance: PREDNISOLONE
     Dosage: UNK, Q12H(MORNING 40MG, LUNCH 20MG)
     Route: 048
  11. OPDIVO [Suspect]
     Active Substance: NIVOLUMAB
     Indication: PLEURAL MESOTHELIOMA MALIGNANT
     Dosage: 240 MG
     Route: 041
     Dates: start: 20191002, end: 20191113
  12. MYDRIN-P [Concomitant]
     Active Substance: PHENYLEPHRINE HYDROCHLORIDE\TROPICAMIDE
     Dosage: UNK, EVERYDAY
     Route: 031
  13. BAKTAR [Suspect]
     Active Substance: SULFAMETHOXAZOLE\TRIMETHOPRIM
     Dosage: UNK
     Dates: start: 20200120
  14. ALLOPURINOL. [Concomitant]
     Active Substance: ALLOPURINOL
     Dosage: 200 MG, EVERYDAY
     Route: 048

REACTIONS (8)
  - Inappropriate antidiuretic hormone secretion [Recovering/Resolving]
  - Liver disorder [Recovered/Resolved]
  - Uveitis [Recovering/Resolving]
  - Inappropriate antidiuretic hormone secretion [Recovering/Resolving]
  - Renal impairment [Recovered/Resolved]
  - Arthralgia [Recovered/Resolved]
  - Interstitial lung disease [Recovering/Resolving]
  - Pyrexia [Recovered/Resolved]

NARRATIVE: CASE EVENT DATE: 20191003
